FAERS Safety Report 23662243 (Version 1)
Quarter: 2024Q1

REPORT INFORMATION
  Report Type: Spontaneous
  Country: FR (occurrence: FR)
  Receive Date: 20240322
  Receipt Date: 20240322
  Transmission Date: 20240409
  Serious: Yes (Life-Threatening)
  Sender: FDA-Public Use
  Company Number: None

PATIENT
  Sex: Female

DRUGS (8)
  1. DEXAMETHASONE [Suspect]
     Active Substance: DEXAMETHASONE
     Indication: Product used for unknown indication
     Route: 042
     Dates: start: 20240226, end: 20240226
  2. PROPOFOL [Suspect]
     Active Substance: PROPOFOL
     Indication: Surgery
     Route: 042
     Dates: start: 20240226, end: 20240226
  3. CEFOXITIN [Suspect]
     Active Substance: CEFOXITIN SODIUM
     Indication: Antibiotic prophylaxis
     Route: 042
     Dates: start: 20240226, end: 20240226
  4. NIMESULIDE [Suspect]
     Active Substance: NIMESULIDE
     Indication: Surgery
     Route: 042
     Dates: start: 20240226, end: 20240226
  5. SUFENTANIL [Suspect]
     Active Substance: SUFENTANIL
     Indication: Surgery
     Route: 042
     Dates: start: 20240226, end: 20240226
  6. FLAGYL [Suspect]
     Active Substance: METRONIDAZOLE\METRONIDAZOLE HYDROCHLORIDE
     Indication: Antibiotic prophylaxis
     Route: 042
     Dates: start: 20240226, end: 20240226
  7. DROPERIDOL [Suspect]
     Active Substance: DROPERIDOL
     Indication: Nausea
     Route: 042
     Dates: start: 20240226, end: 20240226
  8. KETAMINE [Suspect]
     Active Substance: KETAMINE
     Indication: Surgery
     Route: 042
     Dates: start: 20240226, end: 20240226

REACTIONS (2)
  - Hypotension [Recovering/Resolving]
  - Anaphylactoid reaction [Recovering/Resolving]

NARRATIVE: CASE EVENT DATE: 20240226
